FAERS Safety Report 6374439-1 (Version None)
Quarter: 2009Q3

REPORT INFORMATION
  Report Type: 
  Country: None (occurrence: None)
  Receive Date: 20090924
  Receipt Date: 20090912
  Transmission Date: 20100115
  Serious: Yes (Death, Other)
  Sender: FDA-Public Use
  Company Number: IN-PFIZER INC-2009262952

PATIENT
  Age: 28 Year

DRUGS (3)
  1. MAGNEX [Suspect]
     Indication: SEPSIS
     Dosage: 2 G, 2X/DAY
     Route: 042
     Dates: start: 20090823, end: 20090825
  2. MAGNEX [Suspect]
     Indication: MULTIPLE INJURIES
  3. GENTAMICIN [Concomitant]
     Route: 042

REACTIONS (4)
  - CEREBRAL HAEMORRHAGE [None]
  - GASTROINTESTINAL HAEMORRHAGE [None]
  - HAEMATURIA [None]
  - THROMBOCYTOPENIA [None]
